FAERS Safety Report 25569335 (Version 1)
Quarter: 2025Q3

REPORT INFORMATION
  Report Type: Spontaneous
  Country: EU (occurrence: EU)
  Receive Date: 20250716
  Receipt Date: 20250716
  Transmission Date: 20251021
  Serious: Yes (Other)
  Sender: VERTEX
  Company Number: EU-VERTEX PHARMACEUTICALS-2025-011187

PATIENT

DRUGS (2)
  1. ELEXACAFTOR\IVACAFTOR\TEZACAFTOR [Suspect]
     Active Substance: ELEXACAFTOR\IVACAFTOR\TEZACAFTOR
     Indication: Cystic fibrosis
     Dosage: UNKNOWN DOSAGE REGIMEN
     Route: 048
  2. IVACAFTOR [Suspect]
     Active Substance: IVACAFTOR
     Indication: Cystic fibrosis
     Route: 048

REACTIONS (16)
  - Petit mal epilepsy [Unknown]
  - Brain fog [Unknown]
  - Behaviour disorder [Unknown]
  - Disturbance in attention [Unknown]
  - Agitation [Unknown]
  - Nausea [Unknown]
  - Learning disorder [Unknown]
  - Tic [Unknown]
  - Asthenia [Unknown]
  - Pyrexia [Unknown]
  - Hyperpyrexia [Unknown]
  - Depression [Unknown]
  - Abdominal pain upper [Unknown]
  - Liver function test increased [Unknown]
  - Rash [Unknown]
  - Headache [Unknown]
